FAERS Safety Report 5093451-6 (Version None)
Quarter: 2006Q3

REPORT INFORMATION
  Report Type: 
  Country: None (occurrence: None)
  Receive Date: 20060828
  Receipt Date: 20060822
  Transmission Date: 20061208
  Serious: Yes (Other)
  Sender: FDA-Public Use
  Company Number: 2006-DE-04396GD

PATIENT
  Age: 27 Year
  Sex: Female

DRUGS (2)
  1. PREDNISONE TAB [Suspect]
     Indication: MASTITIS
     Dosage: 1 MG/KG
  2. METHOTREXATE [Suspect]
     Indication: MASTITIS
     Dosage: 15 MG/WEEK

REACTIONS (5)
  - CORYNEBACTERIUM INFECTION [None]
  - DISEASE RECURRENCE [None]
  - GRANULOMA [None]
  - PURULENT DISCHARGE [None]
  - THERAPEUTIC RESPONSE DECREASED [None]
